FAERS Safety Report 24404931 (Version 1)
Quarter: 2024Q4

REPORT INFORMATION
  Report Type: Spontaneous
  Country: US (occurrence: None)
  Receive Date: 20241004
  Receipt Date: 20241004
  Transmission Date: 20250115
  Serious: Yes (Hospitalization)
  Sender: Public
  Company Number: None

PATIENT
  Age: 85 Year
  Sex: Male
  Weight: 77 kg

DRUGS (1)
  1. WARFARIN SODIUM [Suspect]
     Active Substance: WARFARIN SODIUM
     Indication: Atrial fibrillation
     Dates: start: 20240206, end: 20240320

REACTIONS (5)
  - Gastrointestinal haemorrhage [None]
  - International normalised ratio increased [None]
  - Haematochezia [None]
  - Enterococcal infection [None]
  - Urinary tract infection [None]

NARRATIVE: CASE EVENT DATE: 20240312
